FAERS Safety Report 6756132-6 (Version None)
Quarter: 2010Q2

REPORT INFORMATION
  Report Type: 
  Country: None (occurrence: None)
  Receive Date: 20100604
  Receipt Date: 20100525
  Transmission Date: 20101027
  Serious: Yes (Other)
  Sender: FDA-Public Use
  Company Number: NL-JNJFOC-20100510070

PATIENT
  Sex: Female

DRUGS (6)
  1. REMICADE [Suspect]
     Indication: PSORIATIC ARTHROPATHY
     Route: 042
  2. REMICADE [Suspect]
     Route: 042
  3. REMICADE [Suspect]
     Indication: RHEUMATOID ARTHRITIS
     Route: 042
  4. REMICADE [Suspect]
     Route: 042
  5. PREDNISONE [Concomitant]
  6. CORTICOSTEROID [Concomitant]
     Route: 061

REACTIONS (3)
  - BURNING SENSATION [None]
  - OEDEMA [None]
  - PHOTOSENSITIVITY REACTION [None]
